FAERS Safety Report 10620844 (Version 2)
Quarter: 2015Q1

REPORT INFORMATION
  Report Type: Spontaneous
  Country: JP (occurrence: JP)
  Receive Date: 20141202
  Receipt Date: 20150122
  Transmission Date: 20150720
  Serious: No
  Sender: FDA-Public Use
  Company Number: JP-009507513-1411JPN013632

PATIENT

DRUGS (2)
  1. PREMINENT TABLETS [Suspect]
     Active Substance: HYDROCHLOROTHIAZIDE\LOSARTAN POTASSIUM
     Dosage: ONE TABLET ONCE A DAY
     Route: 048
     Dates: end: 201411
  2. DIURETIC (UNSPECIFIED) [Concomitant]
     Active Substance: UNSPECIFIED INGREDIENT
     Dosage: DAILY DOSAGE UNKNOWN
     Route: 065

REACTIONS (2)
  - Increased appetite [Unknown]
  - Hyponatraemia [Recovered/Resolved]

NARRATIVE: CASE EVENT DATE: 201411
